FAERS Safety Report 17171583 (Version 2)
Quarter: 2020Q1

REPORT INFORMATION
  Report Type: Spontaneous
  Country: RU (occurrence: RU)
  Receive Date: 20191218
  Receipt Date: 20200124
  Transmission Date: 20200409
  Serious: Yes (Hospitalization)
  Sender: FDA-Public Use
  Company Number: RU-JNJFOC-20191219256

PATIENT
  Age: 85 Year
  Sex: Female
  Weight: 76 kg

DRUGS (4)
  1. VALSACOR [Concomitant]
     Active Substance: VALSARTAN
     Indication: HYPERTENSION
  2. RIVAROXABAN [Suspect]
     Active Substance: RIVAROXABAN
     Indication: PRODUCT USED FOR UNKNOWN INDICATION
     Dosage: 15 MG, QD
     Route: 048
     Dates: start: 2017, end: 201908
  3. CONCOR [Concomitant]
     Active Substance: BISOPROLOL FUMARATE
  4. VEROSPIRON [Concomitant]
     Active Substance: SPIRONOLACTONE

REACTIONS (1)
  - Hypotension [Recovered/Resolved]
